FAERS Safety Report 9394758 (Version 1)
Quarter: 2014Q1

REPORT INFORMATION
  Report Type: Spontaneous
  Country: US (occurrence: None)
  Receive Date: 20130709
  Receipt Date: 20130709
  Transmission Date: 20141002
  Serious: Yes (Hospitalization)
  Sender: FDA-Public Use
  Company Number: None

PATIENT
  Age: 74 Year
  Sex: Male
  Weight: 59.42 kg

DRUGS (17)
  1. GEMCITABINE [Suspect]
     Indication: PANCREATIC CARCINOMA METASTATIC
     Route: 042
     Dates: start: 20130325, end: 20130605
  2. CISPLATIN [Suspect]
     Indication: PANCREATIC CARCINOMA
     Route: 042
     Dates: start: 20130325, end: 20130605
  3. 5-FLUOROURACIL [Suspect]
     Indication: PANCREATIC CARCINOMA
     Route: 042
     Dates: start: 20130325, end: 20130605
  4. SODIUM CHLORIDE [Concomitant]
  5. MAALOX [Concomitant]
  6. ASPIRIN [Concomitant]
  7. DULCOLAX [Concomitant]
  8. HEPARIN FLUSH [Concomitant]
  9. NORCO [Concomitant]
  10. EMLA CREAM [Concomitant]
  11. CREON [Concomitant]
  12. MEGESTROL [Concomitant]
  13. MELATONIN [Concomitant]
  14. PRILOSEC [Concomitant]
  15. ZOFRAN [Concomitant]
  16. MIRALAX [Concomitant]
  17. PROCHLORPERAZINE [Concomitant]

REACTIONS (4)
  - Duodenal obstruction [None]
  - Decreased appetite [None]
  - Constipation [None]
  - Platelet count decreased [None]
